FAERS Safety Report 20656138 (Version 1)
Quarter: 2022Q1

REPORT INFORMATION
  Report Type: Spontaneous
  Country: US (occurrence: None)
  Receive Date: 20220330
  Receipt Date: 20220330
  Transmission Date: 20220423
  Serious: Yes (Death, Hospitalization)
  Sender: FDA-Public Use
  Company Number: 2022A130591

PATIENT
  Age: 22198 Day
  Sex: Male
  Weight: 74.8 kg

DRUGS (1)
  1. BYDUREON [Suspect]
     Active Substance: EXENATIDE
     Indication: Type 2 diabetes mellitus
     Dosage: 2 MG, ONCE A WEEK F
     Route: 065
     Dates: start: 20210822

REACTIONS (1)
  - Illness [Fatal]

NARRATIVE: CASE EVENT DATE: 20210827
